FAERS Safety Report 9553370 (Version 1)
Quarter: 2013Q3

REPORT INFORMATION
  Report Type: Spontaneous
  Country: US (occurrence: US)
  Receive Date: 20130925
  Receipt Date: 20130925
  Transmission Date: 20140515
  Serious: Yes (Other)
  Sender: FDA-Public Use
  Company Number: US-MYLANLABS-2013S1020726

PATIENT
  Age: 26 Year
  Sex: Male

DRUGS (3)
  1. TOPIRAMATE [Suspect]
     Indication: COMPULSIVE SEXUAL BEHAVIOUR
     Dosage: TITRATED TO 50 MG/DAY
     Route: 065
  2. AMPHETAMINE MIXED SALTS [Suspect]
     Indication: COGNITIVE DISORDER
     Route: 065
  3. LEVETIRACETAM [Suspect]
     Indication: COMPULSIVE SEXUAL BEHAVIOUR
     Dosage: TITRATED TO THIS DOSAGE
     Route: 065

REACTIONS (3)
  - Cognitive disorder [Recovering/Resolving]
  - Sedation [Unknown]
  - Sexual dysfunction [Unknown]
